FAERS Safety Report 7965469-4 (Version None)
Quarter: 2011Q4

REPORT INFORMATION
  Report Type: 
  Country: None (occurrence: None)
  Receive Date: 20111208
  Receipt Date: 20111129
  Transmission Date: 20120403
  Serious: Yes (Hospitalization, Other)
  Sender: FDA-Public Use
  Company Number: US-ABBOTT-11P-163-0879809-00

PATIENT
  Age: 85 Year
  Sex: Male

DRUGS (1)
  1. LUPRON DEPOT [Suspect]
     Indication: PROSTATIC SPECIFIC ANTIGEN INCREASED
     Dosage: UNKNOWN DOSE, NOT SURE IF TAKING 11.25MG OR 30MG

REACTIONS (18)
  - MUSCULAR WEAKNESS [None]
  - HYPOAESTHESIA [None]
  - SKIN WARM [None]
  - VOMITING [None]
  - UROGENITAL ATROPHY [None]
  - EYELID PTOSIS [None]
  - PNEUMONIA [None]
  - ANAEMIA [None]
  - HAEMATEMESIS [None]
  - ASTHENIA [None]
  - FLUSHING [None]
  - OEDEMA PERIPHERAL [None]
  - DIZZINESS [None]
  - DYSPNOEA [None]
  - ABDOMINAL DISTENSION [None]
  - DIARRHOEA [None]
  - FATIGUE [None]
  - CHOKING [None]
